FAERS Safety Report 9444089 (Version 1)
Quarter: 2013Q3

REPORT INFORMATION
  Report Type: Spontaneous
  Country: US (occurrence: None)
  Receive Date: 20130806
  Receipt Date: 20130806
  Transmission Date: 20140515
  Serious: Yes (Hospitalization)
  Sender: FDA-Public Use
  Company Number: 2013PROUSA02991

PATIENT
  Age: 63 Year
  Sex: Male

DRUGS (1)
  1. PROVENGE [Suspect]
     Indication: PROSTATE CANCER
     Route: 042
     Dates: start: 20130509, end: 20130509

REACTIONS (7)
  - Medical observation [None]
  - Dehydration [None]
  - Body temperature increased [None]
  - Nausea [None]
  - Vomiting [None]
  - Chills [None]
  - Infusion related reaction [None]
